FAERS Safety Report 9928783 (Version 1)
Quarter: 2014Q1

REPORT INFORMATION
  Report Type: Spontaneous
  Country: FR (occurrence: FR)
  Receive Date: 20140227
  Receipt Date: 20140227
  Transmission Date: 20141002
  Serious: Yes (Hospitalization)
  Sender: FDA-Public Use
  Company Number: FR-ASTRAZENECA-2014SE11861

PATIENT
  Age: 30921 Day
  Sex: Female

DRUGS (2)
  1. TENORMINE [Suspect]
     Indication: ATRIAL FIBRILLATION
     Route: 048
     Dates: start: 20140131
  2. FLECAINE SR [Suspect]
     Indication: ATRIAL FIBRILLATION
     Route: 048
     Dates: start: 20140131

REACTIONS (3)
  - Malaise [Recovered/Resolved]
  - Sinus arrhythmia [Recovered/Resolved with Sequelae]
  - Bradycardia [Recovered/Resolved with Sequelae]
